FAERS Safety Report 9266570 (Version 1)
Quarter: 2013Q2

REPORT INFORMATION
  Report Type: Spontaneous
  Country: MX (occurrence: MX)
  Receive Date: 20130502
  Receipt Date: 20130502
  Transmission Date: 20140414
  Serious: Yes (Death, Other)
  Sender: FDA-Public Use
  Company Number: PHHY2013MX042737

PATIENT
  Age: 48 Year
  Sex: Female

DRUGS (10)
  1. CICLOSPORIN [Suspect]
     Dosage: 5 MG/KG, UNK
     Route: 048
  2. METHOTREXATE [Suspect]
     Dosage: 5 MG/M2, OT; ON DAYS +1, +3, +5, AND +11
     Route: 042
  3. DEXAMETHASONE [Suspect]
  4. FLUDARABINE [Suspect]
     Indication: BONE MARROW CONDITIONING REGIMEN
     Dosage: 30 MG/M2, OT, ON DAY -4, -3, AND -2
     Route: 042
  5. CYCLOPHOSPHAMIDE [Suspect]
     Indication: BONE MARROW CONDITIONING REGIMEN
     Dosage: 350 MG/M2, OT; ON DAYS -4,-3 AND - 2
     Route: 042
  6. BUSULFAN [Suspect]
     Indication: BONE MARROW CONDITIONING REGIMEN
     Dosage: 4 MG/KG, OT; DAYS -6 AND - 5
     Route: 048
  7. ONDASETRON [Concomitant]
     Dosage: 1 MG, QH FOR 4 H AFTER CHEMOTHERAPY
     Route: 042
  8. THALIDOMIDE [Concomitant]
  9. BORTEZOMIB [Concomitant]
  10. QUINOLONE NOS [Concomitant]
     Route: 048

REACTIONS (3)
  - Cerebral aspergillosis [Fatal]
  - Graft versus host disease [Unknown]
  - Chronic graft versus host disease [Unknown]
